FAERS Safety Report 17214785 (Version 1)
Quarter: 2019Q4

REPORT INFORMATION
  Report Type: Spontaneous
  Country: DE (occurrence: DE)
  Receive Date: 20191230
  Receipt Date: 20191230
  Transmission Date: 20200122
  Serious: Yes (Other)
  Sender: FDA-Public Use
  Company Number: DE-MYLANLABS-2019M1128434

PATIENT
  Age: 53 Year
  Sex: Male

DRUGS (1)
  1. EVEROLIMUS. [Suspect]
     Active Substance: EVEROLIMUS
     Indication: NEUROENDOCRINE TUMOUR
     Dosage: UNK
     Route: 065

REACTIONS (6)
  - Metastases to pleura [Unknown]
  - Metastases to peritoneum [Unknown]
  - Metastases to lung [Unknown]
  - Metastases to liver [Unknown]
  - Malignant neoplasm progression [Unknown]
  - Neuroendocrine tumour [Unknown]
